FAERS Safety Report 4394405-5 (Version None)
Quarter: 2004Q3

REPORT INFORMATION
  Report Type: 
  Country: None (occurrence: None)
  Receive Date: 20040712
  Receipt Date: 20040702
  Transmission Date: 20050211
  Serious: Yes (Hospitalization)
  Sender: FDA-Public Use
  Company Number: 200415031US

PATIENT
  Sex: 0

DRUGS (2)
  1. LOVENOX [Suspect]
     Indication: HIP ARTHROPLASTY
     Dosage: DOSE: UNK
  2. LOVENOX [Suspect]
     Indication: KNEE ARTHROPLASTY
     Dosage: DOSE: UNK

REACTIONS (1)
  - POST PROCEDURAL DISCHARGE [None]
